FAERS Safety Report 9064874 (Version 1)
Quarter: 2013Q1

REPORT INFORMATION
  Report Type: Spontaneous
  Country: US (occurrence: US)
  Receive Date: 20130130
  Receipt Date: 20130130
  Transmission Date: 20140127
  Serious: No
  Sender: FDA-Public Use
  Company Number: US-BAYER-2013-008069

PATIENT
  Age: 67 Year
  Sex: Male
  Weight: 102.4 kg

DRUGS (10)
  1. ALEVE CAPLET/TABLET,MIDOL EXTENDED RELIEF CAPLET [Suspect]
     Indication: MUSCULOSKELETAL PAIN
     Dosage: 2 DF, BEFORE MEALS
     Route: 048
     Dates: start: 201210
  2. BAYER ASPIRIN REGIMEN ADULT LOW STRENGTH [Concomitant]
     Indication: ISCHAEMIC HEART DISEASE PROPHYLAXIS
  3. LIPITOR [Concomitant]
  4. TEVETEN [Concomitant]
  5. ZIAC [Concomitant]
  6. KLOR-CON [Concomitant]
  7. ALLOPURINOL [Concomitant]
  8. PRILOSEC [Concomitant]
  9. CQ-10 [Concomitant]
  10. BETA-CAROTENE [Concomitant]

REACTIONS (1)
  - Incorrect drug administration duration [None]
